FAERS Safety Report 13725825 (Version 1)
Quarter: 2017Q3

REPORT INFORMATION
  Report Type: Spontaneous
  Country: US (occurrence: US)
  Receive Date: 20170706
  Receipt Date: 20170706
  Transmission Date: 20171127
  Serious: Yes (Other)
  Sender: FDA-Public Use
  Company Number: None

PATIENT
  Age: 71 Year
  Sex: Male
  Weight: 90 kg

DRUGS (4)
  1. ASPIRIN. [Concomitant]
     Active Substance: ASPIRIN
  2. CIPRODEX [Concomitant]
     Active Substance: CIPROFLOXACIN HYDROCHLORIDE\DEXAMETHASONE
  3. CLINDAMYCIN  300MG [Suspect]
     Active Substance: CLINDAMYCIN PHOSPHATE
     Indication: TOOTH ABSCESS
     Dosage: ?          OTHER STRENGTH:MG;QUANTITY:1 CAPSULE(S);?EVERY 8 HOURS ORAL?
     Route: 048
     Dates: start: 20170610, end: 20170610
  4. FLONASE [Concomitant]
     Active Substance: FLUTICASONE PROPIONATE

REACTIONS (4)
  - Anosmia [None]
  - Drug effect incomplete [None]
  - Malaise [None]
  - Ageusia [None]

NARRATIVE: CASE EVENT DATE: 20170610
